FAERS Safety Report 8485441-8 (Version None)
Quarter: 2012Q2

REPORT INFORMATION
  Report Type: 
  Country: None (occurrence: None)
  Receive Date: 20120627
  Receipt Date: 20120627
  Transmission Date: 20120825
  Serious: Yes (Hospitalization)
  Sender: FDA-Public Use
  Company Number: None

PATIENT
  Sex: Male
  Weight: 122.5 kg

DRUGS (1)
  1. ISOTRETINOIN [Suspect]
     Indication: ACNE
     Dosage: PO
     Route: 048

REACTIONS (12)
  - SINUS TACHYCARDIA [None]
  - PULMONARY EMBOLISM [None]
  - BRONCHITIS [None]
  - NAUSEA [None]
  - BALANCE DISORDER [None]
  - PNEUMONIA [None]
  - HEADACHE [None]
  - ANXIETY [None]
  - MYOCARDIAL STRAIN [None]
  - TROPONIN INCREASED [None]
  - CARDIAC VENTRICULAR DISORDER [None]
  - ELECTROCARDIOGRAM ST SEGMENT ELEVATION [None]
